FAERS Safety Report 4653340-5 (Version None)
Quarter: 2005Q2

REPORT INFORMATION
  Report Type: 
  Country: None (occurrence: None)
  Receive Date: 20050504
  Receipt Date: 20050504
  Transmission Date: 20051028
  Serious: Yes (Disabling)
  Sender: FDA-Public Use
  Company Number: None

PATIENT
  Age: 55 Year
  Sex: Male
  Weight: 70.3075 kg

DRUGS (1)
  1. LESCOL XL [Suspect]
     Dosage: 80 MG
     Dates: start: 20040801

REACTIONS (1)
  - CHONDROPATHY [None]
